FAERS Safety Report 5754004-7 (Version None)
Quarter: 2008Q2

REPORT INFORMATION
  Report Type: 
  Country: None (occurrence: None)
  Receive Date: 20080527
  Receipt Date: 20080527
  Transmission Date: 20081010
  Serious: Yes (Life-Threatening)
  Sender: FDA-Public Use
  Company Number: None

PATIENT
  Age: 74 Year
  Sex: Female
  Weight: 54.4316 kg

DRUGS (1)
  1. AMBIEN [Suspect]
     Indication: INSOMNIA
     Dosage: 10MG DAILY PO
     Route: 048
     Dates: start: 20080505, end: 20080524

REACTIONS (5)
  - CHEST PAIN [None]
  - DIPLOPIA [None]
  - DYSPEPSIA [None]
  - HEADACHE [None]
  - VISION BLURRED [None]
